FAERS Safety Report 4620981-0 (Version None)
Quarter: 2005Q2

REPORT INFORMATION
  Report Type: 
  Country: None (occurrence: None)
  Receive Date: 20050315
  Receipt Date: 20050216
  Transmission Date: 20051028
  Serious: No
  Sender: FDA-Public Use
  Company Number: US-YAMANOUCHI-YPA20050073

PATIENT
  Age: 55 Year
  Sex: Female

DRUGS (9)
  1. VESICARE [Suspect]
     Indication: HYPERTONIC BLADDER
     Dosage: 5 MG DAILY PO
     Route: 048
     Dates: start: 20050120, end: 20050215
  2. ZYRTEC [Concomitant]
  3. TRAZADONE [Concomitant]
  4. ENOXAPARIN SODIUM [Concomitant]
  5. PREVACID [Concomitant]
  6. MULTI-VITAMINS [Concomitant]
  7. FIBERCON [Concomitant]
  8. NAPROXEN [Concomitant]
  9. ASPIRIN [Concomitant]

REACTIONS (2)
  - VISION BLURRED [None]
  - VISUAL ACUITY REDUCED [None]
